FAERS Safety Report 25345361 (Version 2)
Quarter: 2025Q3

REPORT INFORMATION
  Report Type: Spontaneous
  Country: US (occurrence: US)
  Receive Date: 20250522
  Receipt Date: 20250703
  Transmission Date: 20251020
  Serious: No
  Sender: NEUROCRINE BIOSCIENCES
  Company Number: US-NEUROCRINE BIOSCIENCES INC.-2025NBI05076

PATIENT
  Age: 69 Year

DRUGS (20)
  1. INGREZZA [Suspect]
     Active Substance: VALBENAZINE DITOSYLATE
     Indication: Tardive dyskinesia
     Route: 065
     Dates: start: 20250322, end: 20250411
  2. ACETAMINOPHEN [Concomitant]
     Active Substance: ACETAMINOPHEN
     Indication: Pain
     Route: 048
     Dates: start: 20250225
  3. ASCORBIC ACID [Concomitant]
     Active Substance: ASCORBIC ACID
     Indication: Supplementation therapy
     Route: 048
     Dates: start: 20250225
  4. ASPIRIN [Concomitant]
     Active Substance: ASPIRIN
     Indication: Cerebrovascular accident
     Route: 048
     Dates: start: 20250304
  5. COMPLEX B [VITAMIN B COMPLEX] [Concomitant]
     Indication: Vitamin supplementation
     Route: 048
     Dates: start: 20250225
  6. DEPAKOTE ER [Concomitant]
     Active Substance: DIVALPROEX SODIUM
     Indication: Bipolar disorder
     Route: 048
     Dates: start: 20250304
  7. DEPAKOTE ER [Concomitant]
     Active Substance: DIVALPROEX SODIUM
     Indication: Depression
  8. HYPROMELLOSE;PROPYLENE GLYCOL [Concomitant]
     Indication: Dry eye
     Dates: start: 20250304
  9. FISH OIL [Concomitant]
     Active Substance: FISH OIL
     Indication: Supplementation therapy
     Route: 048
     Dates: start: 20250225
  10. GEMTESA [Concomitant]
     Active Substance: VIBEGRON
     Indication: Hypertonic bladder
     Route: 048
     Dates: start: 20250225
  11. GLYCOLAX [Concomitant]
     Active Substance: POLYETHYLENE GLYCOL 3350
     Indication: Constipation
     Route: 048
     Dates: start: 20250225
  12. GUAIFENESIN AND DEXTROMETHORPHAN [Concomitant]
     Active Substance: DEXTROMETHORPHAN\GUAIFENESIN
     Indication: Cough
     Route: 048
  13. LIPITOR [Concomitant]
     Active Substance: ATORVASTATIN CALCIUM
     Route: 048
  14. MELATONIN [Concomitant]
     Active Substance: MELATONIN
     Indication: Insomnia
     Route: 048
  15. MUCINEX [Concomitant]
     Active Substance: GUAIFENESIN
     Indication: Cough
  16. NYSTATIN [Concomitant]
     Active Substance: NYSTATIN
     Indication: Oral candidiasis
     Route: 048
     Dates: start: 20250225
  17. HYPOCHLOROUS ACID [Concomitant]
     Active Substance: HYPOCHLOROUS ACID
     Indication: Eyelid irritation
  18. PEPTO-BISMOL [Concomitant]
     Active Substance: BISMUTH SUBSALICYLATE
     Indication: Diarrhoea
     Route: 048
     Dates: start: 20250225
  19. PROVERA [Concomitant]
     Active Substance: MEDROXYPROGESTERONE ACETATE
     Indication: Hypersexuality
     Dates: start: 20250225
  20. REFRESH LIQUIGEL [Concomitant]
     Active Substance: CARBOXYMETHYLCELLULOSE SODIUM
     Indication: Dry eye
     Dates: start: 20250225

REACTIONS (5)
  - Tearfulness [Recovered/Resolved]
  - Abdominal pain [Unknown]
  - Decreased appetite [Unknown]
  - Somnolence [Unknown]
  - Insomnia [Unknown]

NARRATIVE: CASE EVENT DATE: 20250325
